FAERS Safety Report 6869387-4 (Version None)
Quarter: 2010Q3

REPORT INFORMATION
  Report Type: 
  Country: None (occurrence: None)
  Receive Date: 20100722
  Receipt Date: 20100722
  Transmission Date: 20110219
  Serious: Yes (Death)
  Sender: FDA-Public Use
  Company Number: None

PATIENT
  Age: 62 Year
  Sex: Male

DRUGS (12)
  1. REVLIMID [Suspect]
     Dosage: REVLIMID 10MG DAILY X21D ORALLY
     Route: 048
     Dates: start: 20090619, end: 20100713
  2. REVLIMID [Suspect]
  3. REVLIMID [Suspect]
     Dosage: REVLIMID 25MG DAILY X21D ORALLY
     Route: 048
     Dates: start: 20081113, end: 20090612
  4. DEXAMETHASONE [Concomitant]
  5. VELCADE [Concomitant]
  6. DOXIL [Concomitant]
  7. AREDIA [Concomitant]
  8. ASPIRIN [Concomitant]
  9. BACTRIM [Concomitant]
  10. ACYCLOVIR [Concomitant]
  11. FAMOTIDINE [Concomitant]
  12. TRAMADOL HYDROCHLORIDE [Concomitant]

REACTIONS (4)
  - LEUKOPENIA [None]
  - MALIGNANT NEOPLASM PROGRESSION [None]
  - MULTIPLE MYELOMA [None]
  - STEM CELL TRANSPLANT [None]
